FAERS Safety Report 13180200 (Version 1)
Quarter: 2017Q1

REPORT INFORMATION
  Report Type: Report from Study
  Country: US (occurrence: US)
  Receive Date: 20170202
  Receipt Date: 20170202
  Transmission Date: 20170428
  Serious: Yes (Hospitalization, Other)
  Sender: FDA-Public Use
  Company Number: US-GILEAD-2016-0219121

PATIENT
  Age: 50 Year
  Sex: Female

DRUGS (2)
  1. AMBRISENTAN [Suspect]
     Active Substance: AMBRISENTAN
     Indication: PRODUCT USED FOR UNKNOWN INDICATION
     Dosage: 5 MG, QD
     Route: 065
     Dates: start: 20160422, end: 20170121
  2. OXYGEN. [Concomitant]
     Active Substance: OXYGEN

REACTIONS (6)
  - Heart transplant [Unknown]
  - Cardiac disorder [Unknown]
  - Dyspnoea exertional [Unknown]
  - Lung transplant [Unknown]
  - Lung disorder [Unknown]
  - Drug ineffective [Unknown]
